FAERS Safety Report 7311032-8 (Version None)
Quarter: 2011Q1

REPORT INFORMATION
  Report Type: 
  Country: None (occurrence: None)
  Receive Date: 20110210
  Receipt Date: 20110204
  Transmission Date: 20110831
  Serious: Yes (Death)
  Sender: FDA-Public Use
  Company Number: UTC-005125

PATIENT
  Sex: Male

DRUGS (4)
  1. ADCIRCA [Concomitant]
  2. DIURETICS (DIURETICS) [Concomitant]
  3. TYVASO [Suspect]
     Dosage: INHALATION
     Route: 055
     Dates: start: 20100419
  4. COUMADIN [Concomitant]

REACTIONS (1)
  - DEATH [None]
